FAERS Safety Report 9054496 (Version 1)
Quarter: 2013Q1

REPORT INFORMATION
  Report Type: Spontaneous
  Country: US (occurrence: US)
  Receive Date: 20130208
  Receipt Date: 20130208
  Transmission Date: 20140127
  Serious: No
  Sender: FDA-Public Use
  Company Number: US-GLAXOSMITHKLINE-A0993346A

PATIENT
  Age: 0 None
  Sex: Male

DRUGS (3)
  1. PAXIL [Suspect]
     Indication: PRODUCT USED FOR UNKNOWN INDICATION
     Dosage: 20MG AT NIGHT
     Route: 064
  2. PAXIL CR [Suspect]
     Indication: PRODUCT USED FOR UNKNOWN INDICATION
     Dosage: 25MG AT NIGHT
     Route: 064
  3. DEPAKOTE ER [Concomitant]
     Route: 064

REACTIONS (2)
  - Adverse event [Unknown]
  - Foetal exposure during pregnancy [Unknown]
